FAERS Safety Report 23776609 (Version 3)
Quarter: 2024Q2

REPORT INFORMATION
  Report Type: Report from Study
  Country: MX (occurrence: MX)
  Receive Date: 20240424
  Receipt Date: 20240621
  Transmission Date: 20240716
  Serious: Yes (Other)
  Sender: FDA-Public Use
  Company Number: MX-002147023-NVSC2023MX266020

PATIENT
  Age: 49 Year
  Sex: Female
  Weight: 77 kg

DRUGS (7)
  1. OFATUMUMAB [Suspect]
     Active Substance: OFATUMUMAB
     Indication: Multiple sclerosis
     Dosage: 20 MG, QMO
     Route: 058
     Dates: start: 20231208
  2. OFATUMUMAB [Suspect]
     Active Substance: OFATUMUMAB
     Dosage: 20 MG, QMO
     Route: 058
  3. OFATUMUMAB [Suspect]
     Active Substance: OFATUMUMAB
     Dosage: 1 X 20 MG, QW
     Route: 058
     Dates: end: 20240117
  4. OFATUMUMAB [Suspect]
     Active Substance: OFATUMUMAB
     Dosage: 20 MG, EVERY 28 DAYS
     Route: 058
     Dates: start: 20240308
  5. OFATUMUMAB [Suspect]
     Active Substance: OFATUMUMAB
     Dosage: 20 MG, QMO
     Route: 058
     Dates: start: 20231208
  6. OFATUMUMAB [Suspect]
     Active Substance: OFATUMUMAB
     Dosage: 20 MG, QMO (20 MG/0.4 ML)
     Route: 058
  7. FINGOLIMOD [Suspect]
     Active Substance: FINGOLIMOD
     Indication: Multiple sclerosis
     Dosage: UNK
     Route: 065
     Dates: start: 2019, end: 202311

REACTIONS (17)
  - Multiple sclerosis relapse [Unknown]
  - Herpes virus infection [Unknown]
  - Somnolence [Not Recovered/Not Resolved]
  - Bone pain [Recovering/Resolving]
  - Headache [Not Recovered/Not Resolved]
  - Abdominal pain [Unknown]
  - Herpes dermatitis [Recovered/Resolved]
  - Skin lesion [Recovering/Resolving]
  - Skin discomfort [Recovering/Resolving]
  - Decreased immune responsiveness [Recovered/Resolved]
  - Asthenia [Unknown]
  - Arthralgia [Unknown]
  - Laziness [Recovering/Resolving]
  - Discouragement [Unknown]
  - Paraesthesia [Recovered/Resolved]
  - Therapeutic product effect decreased [Unknown]
  - Off label use [Unknown]

NARRATIVE: CASE EVENT DATE: 20231201
